FAERS Safety Report 9842249 (Version 1)
Quarter: 2014Q1

REPORT INFORMATION
  Report Type: Spontaneous
  Country: GR (occurrence: GR)
  Receive Date: 20140124
  Receipt Date: 20140124
  Transmission Date: 20141002
  Serious: Yes (Death)
  Sender: FDA-Public Use
  Company Number: GR-GLAXOSMITHKLINE-B0962933A

PATIENT
  Age: 95 Year
  Sex: Female

DRUGS (2)
  1. REVOLADE [Suspect]
     Indication: IMMUNE THROMBOCYTOPENIC PURPURA
     Dosage: 25MG PER DAY
     Route: 048
     Dates: start: 20131210, end: 201312
  2. RITUXIMAB [Concomitant]

REACTIONS (2)
  - Pulmonary alveolar haemorrhage [Fatal]
  - Drug ineffective [Unknown]
